FAERS Safety Report 12893017 (Version 7)
Quarter: 2021Q1

REPORT INFORMATION
  Report Type: Spontaneous
  Country: JP (occurrence: JP)
  Receive Date: 20161028
  Receipt Date: 20210212
  Transmission Date: 20210419
  Serious: Yes (Death, Life-Threatening, Hospitalization, Other)
  Sender: FDA-Public Use
  Company Number: JP-UNITED THERAPEUTICS-UNT-2016-002563

PATIENT
  Age: 20 Year
  Sex: Male
  Weight: 54 kg

DRUGS (18)
  1. REMODULIN [Suspect]
     Active Substance: TREPROSTINIL
     Indication: PULMONARY ARTERIAL HYPERTENSION
     Dosage: UNK, CONTINUING
     Route: 041
     Dates: start: 20160202, end: 201602
  2. REMODULIN [Suspect]
     Active Substance: TREPROSTINIL
     Dosage: UNK, CONTINUING
     Route: 041
     Dates: start: 20160304
  3. FLOLAN [Suspect]
     Active Substance: EPOPROSTENOL SODIUM
     Dosage: 0.067 ?G/KG, CONTINUING
     Route: 042
     Dates: start: 201602, end: 20160304
  4. TAKEPRON [Concomitant]
     Active Substance: LANSOPRAZOLE
     Indication: PROPHYLAXIS
     Dosage: UNK
     Route: 048
  5. ADEMPAS [Concomitant]
     Active Substance: RIOCIGUAT
     Indication: PULMONARY ARTERIAL HYPERTENSION
     Dosage: UNK
     Route: 048
     Dates: start: 201507
  6. OPSUMIT [Concomitant]
     Active Substance: MACITENTAN
     Dosage: UNK
     Route: 048
     Dates: start: 20161009, end: 20161019
  7. REMODULIN [Suspect]
     Active Substance: TREPROSTINIL
     Dosage: UNK, CONTINUING
     Route: 041
     Dates: start: 20160219, end: 201602
  8. REMODULIN [Suspect]
     Active Substance: TREPROSTINIL
     Dosage: APPROXIMATELY 0.040 ?G/KG, CONTINUING
     Route: 041
     Dates: start: 20160301
  9. FLOLAN [Suspect]
     Active Substance: EPOPROSTENOL SODIUM
     Dosage: 0.086 ?G/KG, CONTINUING
     Route: 042
     Dates: start: 201602
  10. NEXAVAR [Concomitant]
     Active Substance: SORAFENIB
     Indication: CARDIAC FAILURE CHRONIC
     Dosage: UNK
     Route: 048
  11. ALESION [Concomitant]
     Active Substance: EPINASTINE HYDROCHLORIDE
     Indication: PRODUCT USED FOR UNKNOWN INDICATION
     Dosage: UNK
     Route: 048
  12. ADEMPAS [Concomitant]
     Active Substance: RIOCIGUAT
     Dosage: UNK
     Route: 048
     Dates: start: 20161009, end: 20161019
  13. FLOLAN [Suspect]
     Active Substance: EPOPROSTENOL SODIUM
     Dosage: 0.087 ?G/KG, CONTINUING
     Route: 042
     Dates: start: 20160211
  14. REMODULIN [Suspect]
     Active Substance: TREPROSTINIL
     Dosage: 0.08442 ?G/KG, CONTINUING
     Route: 041
     Dates: start: 201602, end: 20160209
  15. FLOLAN [Suspect]
     Active Substance: EPOPROSTENOL SODIUM
     Indication: PULMONARY ARTERIAL HYPERTENSION
     Dosage: 0.0938 ?G/KG, CONTINUING
     Route: 042
  16. REMODULIN [Suspect]
     Active Substance: TREPROSTINIL
     Dosage: 0.196 ?G/KG, CONTINUING
     Route: 041
     Dates: start: 2016, end: 20161019
  17. NEXAVAR [Concomitant]
     Active Substance: SORAFENIB
     Dosage: UNK
     Route: 048
     Dates: start: 20161009, end: 20161019
  18. OPSUMIT [Concomitant]
     Active Substance: MACITENTAN
     Indication: PULMONARY ARTERIAL HYPERTENSION
     Dosage: UNK
     Route: 048
     Dates: start: 201507

REACTIONS (12)
  - Multiple organ dysfunction syndrome [Fatal]
  - Pain in extremity [Recovering/Resolving]
  - Hypoxia [Not Recovered/Not Resolved]
  - Epistaxis [Recovering/Resolving]
  - Cardiac failure [Fatal]
  - Hypoalbuminaemia [Not Recovered/Not Resolved]
  - Sepsis [Fatal]
  - Bronchitis [Not Recovered/Not Resolved]
  - Pulmonary alveolar haemorrhage [Recovered/Resolved with Sequelae]
  - Pneumonia [Not Recovered/Not Resolved]
  - Acute kidney injury [Not Recovered/Not Resolved]
  - Thrombocytopenia [Not Recovered/Not Resolved]

NARRATIVE: CASE EVENT DATE: 20160208
